FAERS Safety Report 23356043 (Version 1)
Quarter: 2024Q1

REPORT INFORMATION
  Report Type: Spontaneous
  Country: US (occurrence: US)
  Receive Date: 20240102
  Receipt Date: 20240102
  Transmission Date: 20240410
  Serious: No
  Sender: FDA-Public Use
  Company Number: US-HORIZON THERAPEUTICS-HZN-2023-002425

PATIENT

DRUGS (1)
  1. UPLIZNA [Suspect]
     Active Substance: INEBILIZUMAB-CDON
     Indication: Neuromyelitis optica spectrum disorder
     Dosage: UNK (IV INFUSION EVERY 6 MONTHS)
     Route: 042

REACTIONS (2)
  - Abnormal behaviour [Not Recovered/Not Resolved]
  - Product dose omission issue [Unknown]
